FAERS Safety Report 5171672-1 (Version None)
Quarter: 2006Q4

REPORT INFORMATION
  Report Type: 
  Country: None (occurrence: None)
  Receive Date: 20061205
  Receipt Date: 20061121
  Transmission Date: 20070319
  Serious: Yes (Life-Threatening, Hospitalization, Other)
  Sender: FDA-Public Use
  Company Number: 2006144448

PATIENT
  Age: 61 Year
  Sex: Female
  Weight: 54.4316 kg

DRUGS (12)
  1. LYRICA [Suspect]
     Indication: DIABETIC NEUROPATHY
     Dosage: 100 MG (50 MG, 2 IN 1 D)
     Dates: start: 20060801, end: 20061117
  2. PROZAC [Suspect]
     Dates: start: 20061101, end: 20061111
  3. INSULIN (INSULIN) [Concomitant]
  4. HUMULIN (INSULIN HUMAN, INSULIN ISOPHANE, HUMAN BIOSYNTHETIC) [Concomitant]
  5. SYNTHROID [Concomitant]
  6. EPOGEN [Concomitant]
  7. TOPROL-XL [Concomitant]
  8. LASIX [Concomitant]
  9. POTASSIUM (POTASSIUM) [Concomitant]
  10. CAPTOPRIL [Concomitant]
  11. CLONIDINE [Concomitant]
  12. ASPIRIN [Concomitant]

REACTIONS (21)
  - ASCITES [None]
  - ASTHENIA [None]
  - BLOOD CREATININE INCREASED [None]
  - BLOOD POTASSIUM INCREASED [None]
  - BLOOD PRESSURE DECREASED [None]
  - BODY TEMPERATURE DECREASED [None]
  - CARDIAC FAILURE CONGESTIVE [None]
  - CONDITION AGGRAVATED [None]
  - CONFUSIONAL STATE [None]
  - DEHYDRATION [None]
  - DIARRHOEA [None]
  - FAILURE TO THRIVE [None]
  - FEELING ABNORMAL [None]
  - FLUID OVERLOAD [None]
  - HALLUCINATION, VISUAL [None]
  - HEART RATE DECREASED [None]
  - LETHARGY [None]
  - LOSS OF CONSCIOUSNESS [None]
  - OEDEMA [None]
  - PAIN [None]
  - PARAESTHESIA [None]
